FAERS Safety Report 7281359-7 (Version None)
Quarter: 2011Q1

REPORT INFORMATION
  Report Type: 
  Country: None (occurrence: None)
  Receive Date: 20110208
  Receipt Date: 20110128
  Transmission Date: 20110831
  Serious: Yes (Other)
  Sender: FDA-Public Use
  Company Number: JP-JNJFOC-20110200650

PATIENT
  Age: 36 Year
  Sex: Male
  Weight: 96 kg

DRUGS (14)
  1. REMICADE [Suspect]
     Indication: PSORIATIC ARTHROPATHY
     Route: 042
  2. METHOTREXATE [Concomitant]
     Route: 048
  3. ZYLORIC [Concomitant]
     Route: 048
  4. LOXONIN [Concomitant]
     Route: 048
  5. TALION [Concomitant]
     Route: 048
  6. OXAROL [Concomitant]
     Indication: PSORIATIC ARTHROPATHY
  7. TAKEPRON [Concomitant]
     Route: 048
  8. REMICADE [Suspect]
     Route: 042
  9. MUCOSTA [Concomitant]
     Route: 048
  10. PREDNISONE [Concomitant]
     Route: 048
  11. ISCOTIN [Suspect]
     Indication: ANTIBIOTIC PROPHYLAXIS
     Route: 065
  12. DERMOVATE [Concomitant]
     Indication: PSORIATIC ARTHROPATHY
  13. GASTER D [Concomitant]
     Route: 048
  14. FOLIAMIN [Concomitant]
     Route: 048

REACTIONS (3)
  - ALANINE AMINOTRANSFERASE INCREASED [None]
  - ASPARTATE AMINOTRANSFERASE INCREASED [None]
  - LIVER DISORDER [None]
